FAERS Safety Report 7587193-2 (Version None)
Quarter: 2011Q2

REPORT INFORMATION
  Report Type: 
  Country: None (occurrence: None)
  Receive Date: 20110623
  Receipt Date: 20110620
  Transmission Date: 20111010
  Serious: No
  Sender: FDA-Public Use
  Company Number: US-PFIZER INC-2011136478

PATIENT
  Sex: Male
  Weight: 118 kg

DRUGS (2)
  1. LIPITOR [Suspect]
     Indication: BLOOD CHOLESTEROL INCREASED
     Dosage: 30 MG, 1X/DAY
     Route: 048
     Dates: start: 20090201
  2. PREVACID [Concomitant]
     Dosage: UNK

REACTIONS (6)
  - SWELLING [None]
  - FATIGUE [None]
  - FALL [None]
  - ASTHENIA [None]
  - MUSCULAR WEAKNESS [None]
  - DIARRHOEA [None]
